FAERS Safety Report 21456484 (Version 2)
Quarter: 2022Q4

REPORT INFORMATION
  Report Type: Report from Study
  Country: AU (occurrence: AU)
  Receive Date: 20221014
  Receipt Date: 20221017
  Transmission Date: 20230113
  Serious: Yes (Hospitalization, Other)
  Sender: FDA-Public Use
  Company Number: AU-BRISTOL-MYERS SQUIBB COMPANY-2022-115172

PATIENT
  Age: 68 Year
  Sex: Male

DRUGS (3)
  1. NIVOLUMAB [Suspect]
     Active Substance: NIVOLUMAB
     Indication: Metastatic malignant melanoma
     Dosage: 78 UNITS NOT SPECIFIED
     Route: 042
     Dates: start: 20220923, end: 20220923
  2. IPILIMUMAB [Suspect]
     Active Substance: IPILIMUMAB
     Indication: Metastatic malignant melanoma
     Dosage: 234  UNITS NOT SPECIFIED
     Route: 042
     Dates: start: 20220923, end: 20220923
  3. DEXAMETHASONE [Concomitant]
     Active Substance: DEXAMETHASONE
     Indication: Product used for unknown indication
     Route: 065
     Dates: start: 20220927

REACTIONS (1)
  - Adrenal haemorrhage [Recovered/Resolved]

NARRATIVE: CASE EVENT DATE: 20220927
